FAERS Safety Report 22925631 (Version 3)
Quarter: 2023Q4

REPORT INFORMATION
  Report Type: Spontaneous
  Country: JP (occurrence: JP)
  Receive Date: 20230908
  Receipt Date: 20231009
  Transmission Date: 20240110
  Serious: Yes (Other)
  Sender: FDA-Public Use
  Company Number: JP-MSD-M2023-36628

PATIENT
  Age: 77 Year
  Sex: Male
  Weight: 58 kg

DRUGS (11)
  1. LAGEVRIO [Suspect]
     Active Substance: MOLNUPIRAVIR
     Indication: COVID-19 treatment
     Dosage: 800 MILLIGRAM, BID
     Route: 048
     Dates: start: 20230901, end: 20230901
  2. CALONAL [Suspect]
     Active Substance: ACETAMINOPHEN
     Indication: Antipyresis
     Dosage: 500 MILLIGRAM, PRN
     Route: 048
     Dates: start: 20230901, end: 20230901
  3. CALONAL [Suspect]
     Active Substance: ACETAMINOPHEN
     Indication: COVID-19
  4. MIYA-BM [Suspect]
     Active Substance: CLOSTRIDIUM BUTYRICUM SPORES STRAIN M-55
     Indication: Gastrointestinal disorder
     Dosage: 1 GRAM, TID
     Route: 048
     Dates: start: 20230901, end: 20230901
  5. MIYA-BM [Suspect]
     Active Substance: CLOSTRIDIUM BUTYRICUM SPORES STRAIN M-55
     Indication: COVID-19
  6. EPHEDRA SINICA STEM\HERBALS [Suspect]
     Active Substance: EPHEDRA SINICA STEM\HERBALS
     Indication: COVID-19
     Dosage: 3 GRAM, TID
     Route: 048
     Dates: start: 20230901, end: 20230901
  7. SILODOSIN [Concomitant]
     Active Substance: SILODOSIN
     Indication: Benign prostatic hyperplasia
     Dosage: 4 MILLIGRAM, BID
     Route: 048
     Dates: start: 20131121
  8. METHYLCOBALAMIN [Concomitant]
     Active Substance: METHYLCOBALAMIN
     Indication: Postoperative care
     Dosage: 500 MILLIGRAM, TID
     Route: 048
     Dates: start: 20211224
  9. METHYLCOBALAMIN [Concomitant]
     Active Substance: METHYLCOBALAMIN
     Indication: Anaemia postoperative
  10. PLAVIX [Concomitant]
     Active Substance: CLOPIDOGREL BISULFATE
     Indication: Cerebral infarction
     Dosage: 75 MILLIGRAM, QD
     Route: 048
     Dates: start: 20120511
  11. HERBALS [Concomitant]
     Active Substance: HERBALS
     Indication: Cerebral infarction
     Dosage: 2.5 GRAM, TID
     Route: 048
     Dates: start: 20120511

REACTIONS (1)
  - Urinary retention [Recovered/Resolved]

NARRATIVE: CASE EVENT DATE: 20230901
